FAERS Safety Report 5931989-7 (Version None)
Quarter: 2008Q4

REPORT INFORMATION
  Report Type: 
  Country: None (occurrence: None)
  Receive Date: 20081027
  Receipt Date: 20081020
  Transmission Date: 20090506
  Serious: Yes (Hospitalization)
  Sender: FDA-Public Use
  Company Number: ES-ROXANE LABORATORIES, INC.-2008-RO-00144RO

PATIENT
  Age: 81 Year
  Sex: Female

DRUGS (9)
  1. FUROSEMIDE [Suspect]
  2. DIGOXIN [Suspect]
  3. DIAZEPAM [Suspect]
  4. FERRUM [Suspect]
  5. ACENOCOUMAROL [Suspect]
  6. OMEPRAZOLE [Suspect]
  7. FLUVOXAMINE MALEATE [Suspect]
  8. ITRACONAZOLE [Concomitant]
     Indication: PHAEHYPHOMYCOSIS
     Dosage: 100MG
     Route: 048
  9. TERBINAFINE HCL [Concomitant]
     Indication: PHAEHYPHOMYCOSIS
     Dosage: 100MG

REACTIONS (2)
  - HYPOCHROMIC ANAEMIA [None]
  - PHAEHYPHOMYCOSIS [None]
